FAERS Safety Report 17343109 (Version 1)
Quarter: 2020Q1

REPORT INFORMATION
  Report Type: Spontaneous
  Country: FR (occurrence: FR)
  Receive Date: 20200129
  Receipt Date: 20200129
  Transmission Date: 20200409
  Serious: Yes (Hospitalization)
  Sender: FDA-Public Use
  Company Number: FR-MYLANLABS-2020M1010224

PATIENT
  Age: 67 Year
  Sex: Male

DRUGS (12)
  1. SUFENTANIL [Suspect]
     Active Substance: SUFENTANIL
     Indication: HIP SURGERY
     Dosage: UNK
     Route: 042
     Dates: start: 20190913, end: 20190913
  2. DEXAMETHASONE. [Suspect]
     Active Substance: DEXAMETHASONE
     Indication: HIP SURGERY
     Dosage: UNK
     Route: 042
     Dates: start: 20190913, end: 20190913
  3. JANUMET [Concomitant]
     Active Substance: METFORMIN HYDROCHLORIDE\SITAGLIPTIN PHOSPHATE
     Dosage: UNK
  4. HYPERIUM [Concomitant]
     Active Substance: RILMENIDINE PHOSPHATE
     Dosage: UNK
  5. PROPOFOL. [Suspect]
     Active Substance: PROPOFOL
     Indication: HIP SURGERY
     Dosage: UNK
     Route: 042
     Dates: start: 20190913, end: 20190913
  6. TRACRIUM [Suspect]
     Active Substance: ATRACURIUM BESYLATE
     Indication: HIP SURGERY
     Dosage: UNK
     Route: 042
     Dates: start: 20190913, end: 20190913
  7. LERCAN [Concomitant]
     Active Substance: LERCANIDIPINE
     Dosage: UNK
  8. KETAMINE [Suspect]
     Active Substance: KETAMINE
     Indication: HIP SURGERY
     Dosage: UNK
     Route: 042
     Dates: start: 20190913, end: 20190913
  9. TAHOR [Concomitant]
     Active Substance: ATORVASTATIN CALCIUM
     Dosage: UNK
  10. TOUJEO [Concomitant]
     Active Substance: INSULIN GLARGINE
     Dosage: UNK
  11. NOVONORM [Concomitant]
     Active Substance: REPAGLINIDE
     Dosage: UNK
  12. PLAVIX [Concomitant]
     Active Substance: CLOPIDOGREL BISULFATE
     Dosage: UNK

REACTIONS (1)
  - Hypotension [Recovered/Resolved]

NARRATIVE: CASE EVENT DATE: 20190913
